FAERS Safety Report 7003158-3 (Version None)
Quarter: 2010Q3

REPORT INFORMATION
  Report Type: 
  Country: None (occurrence: None)
  Receive Date: 20100920
  Receipt Date: 20100701
  Transmission Date: 20110219
  Serious: No
  Sender: FDA-Public Use
  Company Number: US-ASTRAZENECA-2010SE30841

PATIENT
  Sex: Male

DRUGS (2)
  1. SEROQUEL [Suspect]
     Indication: SLEEP DISORDER
     Dosage: HS
     Route: 048
     Dates: start: 20100601
  2. SEROQUEL [Suspect]
     Dosage: DAILY
     Route: 048
     Dates: start: 20100601

REACTIONS (4)
  - ANXIETY [None]
  - DEPRESSION [None]
  - DIZZINESS [None]
  - MOOD ALTERED [None]
